FAERS Safety Report 19872539 (Version 1)
Quarter: 2021Q3

REPORT INFORMATION
  Report Type: Report from Study
  Country: US (occurrence: US)
  Receive Date: 20210923
  Receipt Date: 20210923
  Transmission Date: 20211014
  Serious: Yes (Other)
  Sender: FDA-Public Use
  Company Number: US-EISAI MEDICAL RESEARCH-EC-2021-099967

PATIENT
  Age: 62 Year
  Sex: Female
  Weight: 83.46 kg

DRUGS (7)
  1. LENVIMA [Suspect]
     Active Substance: LENVATINIB
     Indication: ENDOMETRIAL CANCER
     Route: 048
     Dates: start: 20210721, end: 20210810
  2. LORAZEPAM. [Concomitant]
     Active Substance: LORAZEPAM
  3. XARELTO [Concomitant]
     Active Substance: RIVAROXABAN
  4. ONDANSETRON [Concomitant]
     Active Substance: ONDANSETRON
  5. LOVENOX [Concomitant]
     Active Substance: ENOXAPARIN SODIUM
  6. LENVIMA [Suspect]
     Active Substance: LENVATINIB
     Route: 048
     Dates: start: 20210813, end: 202109
  7. MULTIVITAMIN [Concomitant]
     Active Substance: VITAMINS

REACTIONS (1)
  - Intestinal perforation [Not Recovered/Not Resolved]

NARRATIVE: CASE EVENT DATE: 202109
